FAERS Safety Report 20486622 (Version 1)
Quarter: 2022Q1

REPORT INFORMATION
  Report Type: Spontaneous
  Country: GB (occurrence: GB)
  Receive Date: 20220217
  Receipt Date: 20220217
  Transmission Date: 20220424
  Serious: Yes (Life-Threatening)
  Sender: FDA-Public Use
  Company Number: GB-Bristol Laboratories Ltd-BLL200807-000226

PATIENT
  Sex: Male
  Weight: 3.1 kg

DRUGS (8)
  1. METOCLOPRAMIDE [Suspect]
     Active Substance: METOCLOPRAMIDE
     Indication: Vomiting
     Dosage: 10 MG
     Route: 064
     Dates: start: 20061208, end: 20061218
  2. ONDANSETRON [Suspect]
     Active Substance: ONDANSETRON
     Indication: Vomiting
     Route: 064
  3. OMEPRAZOLE [Suspect]
     Active Substance: OMEPRAZOLE
     Indication: Vomiting
     Dosage: 40 MG
     Route: 064
     Dates: start: 200701
  4. CYCLIZINE [Suspect]
     Active Substance: CYCLIZINE
     Indication: Vomiting
     Route: 064
  5. PROCHLORPERAZINE [Suspect]
     Active Substance: PROCHLORPERAZINE
     Indication: Product used for unknown indication
     Route: 064
  6. ZOFRAN [Suspect]
     Active Substance: ONDANSETRON HYDROCHLORIDE
     Indication: Vomiting
     Route: 064
  7. FERROUS FUMARATE [Concomitant]
     Active Substance: FERROUS FUMARATE
     Indication: Anaemia
     Route: 064
     Dates: start: 20081208
  8. IRON [Concomitant]
     Active Substance: IRON
     Indication: Anaemia
     Route: 064
     Dates: start: 20061208

REACTIONS (5)
  - Necrotising enterocolitis neonatal [Unknown]
  - Abdominal distension [Unknown]
  - Laparotomy [Unknown]
  - Meconium abnormal [Unknown]
  - Foetal exposure during pregnancy [Unknown]
